FAERS Safety Report 14745251 (Version 1)
Quarter: 2018Q2

REPORT INFORMATION
  Report Type: Report from Study
  Country: US (occurrence: US)
  Receive Date: 20180411
  Receipt Date: 20180411
  Transmission Date: 20180711
  Serious: No
  Sender: FDA-Public Use
  Company Number: PHEH2018US012761

PATIENT
  Sex: Female

DRUGS (1)
  1. COSENTYX [Suspect]
     Active Substance: SECUKINUMAB
     Indication: PRODUCT USED FOR UNKNOWN INDICATION
     Route: 058

REACTIONS (7)
  - Pustular psoriasis [Unknown]
  - Skin haemorrhage [Unknown]
  - Erythema [Unknown]
  - Erythrodermic psoriasis [Unknown]
  - Drug ineffective [Unknown]
  - Decreased immune responsiveness [Unknown]
  - Psoriasis [Unknown]
